FAERS Safety Report 4684318-3 (Version None)
Quarter: 2005Q2

REPORT INFORMATION
  Report Type: 
  Country: None (occurrence: None)
  Receive Date: 20050607
  Receipt Date: 20050525
  Transmission Date: 20051028
  Serious: Yes (Hospitalization, Other)
  Sender: FDA-Public Use
  Company Number: 2005AP03049

PATIENT
  Age: 41 Year
  Sex: Female
  Weight: 71 kg

DRUGS (4)
  1. SEROQUEL [Suspect]
     Indication: SCHIZOAFFECTIVE DISORDER
     Dosage: 25MG-600MG MAINTENANCE DOSE SINCE 2001
     Route: 048
     Dates: start: 20010101
  2. SEROQUEL [Suspect]
     Route: 048
  3. AROPAX [Concomitant]
     Dates: start: 20010101
  4. VALIUM [Concomitant]

REACTIONS (2)
  - FAECALOMA [None]
  - THERAPY NON-RESPONDER [None]
